FAERS Safety Report 6752442-7 (Version None)
Quarter: 2010Q2

REPORT INFORMATION
  Report Type: 
  Country: None (occurrence: None)
  Receive Date: 20100528
  Receipt Date: 20100517
  Transmission Date: 20101027
  Serious: Yes (Other)
  Sender: FDA-Public Use
  Company Number: 7004194

PATIENT
  Age: 38 Year
  Sex: Male

DRUGS (5)
  1. REBIF [Suspect]
     Indication: MULTIPLE SCLEROSIS
     Dosage: 44 MCG, 3 IN 1 WK, SUBCUTANEOUS
     Route: 058
     Dates: start: 20080630
  2. GABAPENTIN [Concomitant]
  3. BACLOFEN [Concomitant]
  4. FIORICET [Concomitant]
  5. ALEVE [Concomitant]

REACTIONS (8)
  - BACK DISORDER [None]
  - BACK PAIN [None]
  - BLOOD PRESSURE INCREASED [None]
  - FEELING COLD [None]
  - INFLUENZA LIKE ILLNESS [None]
  - INJECTION SITE REACTION [None]
  - TREMOR [None]
  - WRONG TECHNIQUE IN DRUG USAGE PROCESS [None]
